FAERS Safety Report 8518999-0 (Version None)
Quarter: 2012Q3

REPORT INFORMATION
  Report Type: 
  Country: None (occurrence: None)
  Receive Date: 20120718
  Receipt Date: 20120709
  Transmission Date: 20120928
  Serious: Yes (Hospitalization, Other)
  Sender: FDA-Public Use
  Company Number: US-ACTELION-A-US2007-18710

PATIENT

DRUGS (2)
  1. TRACLEER [Suspect]
     Indication: PULMONARY ARTERIAL HYPERTENSION
     Dosage: UNK
     Route: 048
     Dates: start: 20061122
  2. COUMADIN [Concomitant]

REACTIONS (14)
  - CONVULSION [None]
  - LOSS OF CONSCIOUSNESS [None]
  - DYSPNOEA [None]
  - LACERATION [None]
  - BILIARY CYST [None]
  - ABDOMINAL DISTENSION [None]
  - NEPHROLITHIASIS [None]
  - RENAL CYST [None]
  - RENAL DISORDER [None]
  - ORBITAL OEDEMA [None]
  - BLOOD PRESSURE INCREASED [None]
  - MALAISE [None]
  - HEPATIC CYST [None]
  - COUGH [None]
